FAERS Safety Report 4693286-X (Version None)
Quarter: 2005Q2

REPORT INFORMATION
  Report Type: 
  Country: None (occurrence: None)
  Receive Date: 20050617
  Receipt Date: 20050615
  Transmission Date: 20051028
  Serious: Yes (Hospitalization)
  Sender: FDA-Public Use
  Company Number: US-GLAXOSMITHKLINE-A0562894A

PATIENT
  Age: 52 Year
  Sex: Female
  Weight: 60.5 kg

DRUGS (11)
  1. TOPOTECAN [Suspect]
     Dosage: 2MGM2 WEEKLY
     Route: 042
     Dates: start: 20050509
  2. CISPLATIN [Suspect]
     Dosage: 40MGM2 WEEKLY
     Route: 042
     Dates: start: 20050509
  3. METHADONE HCL [Concomitant]
     Indication: PAIN
     Dosage: 20MG PER DAY
     Route: 048
     Dates: start: 20050401
  4. AMBIEN [Concomitant]
     Indication: SLEEP DISORDER
     Dosage: 5MG PER DAY
     Route: 048
  5. MORPHINE SULFATE [Concomitant]
  6. PEPCID [Concomitant]
  7. PHENERGAN [Concomitant]
     Route: 042
  8. REGLAN [Concomitant]
  9. ZOFRAN [Concomitant]
  10. RADIOTHERAPY [Concomitant]
     Dates: start: 20050509
  11. RED BLOOD CELLS [Concomitant]
     Route: 042

REACTIONS (3)
  - HYPOKALAEMIA [None]
  - PAIN [None]
  - SMALL INTESTINAL OBSTRUCTION [None]
